FAERS Safety Report 19069491 (Version 3)
Quarter: 2022Q3

REPORT INFORMATION
  Report Type: Spontaneous
  Country: US (occurrence: US)
  Receive Date: 20210329
  Receipt Date: 20220815
  Transmission Date: 20221027
  Serious: Yes (Other)
  Sender: FDA-Public Use
  Company Number: US-PFIZER INC-2021314258

PATIENT
  Age: 31 Year
  Sex: Female

DRUGS (1)
  1. IBRANCE [Suspect]
     Active Substance: PALBOCICLIB
     Dosage: 125 MG
     Dates: start: 20210120

REACTIONS (5)
  - Neutropenia [Recovering/Resolving]
  - Product dose omission issue [Unknown]
  - Decreased immune responsiveness [Unknown]
  - Nausea [Recovering/Resolving]
  - White blood cell count decreased [Unknown]

NARRATIVE: CASE EVENT DATE: 20210501
